FAERS Safety Report 8416624-0 (Version None)
Quarter: 2012Q2

REPORT INFORMATION
  Report Type: 
  Country: None (occurrence: None)
  Receive Date: 20120323
  Receipt Date: 20110215
  Transmission Date: 20120825
  Serious: Yes (Other)
  Sender: FDA-Public Use
  Company Number: 163-21880-11021940

PATIENT
  Age: 57 Year
  Sex: Male

DRUGS (4)
  1. MULTIVITAMIN [Concomitant]
  2. REVLIMID [Suspect]
     Indication: MULTIPLE MYELOMA
     Dosage: 25 MG, X 21 DAYS, PO
     Route: 048
     Dates: start: 20101108
  3. LOPID [Concomitant]
  4. OMEGA 3 FATTY ACID (FISH OIL) [Concomitant]

REACTIONS (1)
  - CHEST DISCOMFORT [None]
